FAERS Safety Report 23555883 (Version 1)
Quarter: 2024Q1

REPORT INFORMATION
  Report Type: Report from Study
  Country: US (occurrence: US)
  Receive Date: 20240222
  Receipt Date: 20240222
  Transmission Date: 20240410
  Serious: Yes (Hospitalization, Other)
  Sender: FDA-Public Use
  Company Number: US-SEATTLE GENETICS-2024SGN01723

PATIENT
  Age: 56 Year
  Sex: Female

DRUGS (1)
  1. TUCATINIB [Suspect]
     Active Substance: TUCATINIB
     Indication: Rectal cancer
     Route: 065

REACTIONS (2)
  - Seizure [Unknown]
  - Pain [Unknown]

NARRATIVE: CASE EVENT DATE: 20240131
